FAERS Safety Report 7220893-2 (Version None)
Quarter: 2011Q1

REPORT INFORMATION
  Report Type: 
  Country: None (occurrence: None)
  Receive Date: 20110112
  Receipt Date: 20101007
  Transmission Date: 20110831
  Serious: No
  Sender: FDA-Public Use
  Company Number: A0885439A

PATIENT
  Age: 68 Year
  Sex: Male

DRUGS (7)
  1. JALYN [Suspect]
     Indication: PROSTATIC DISORDER
     Dosage: 1CAP PER DAY
     Route: 048
     Dates: start: 20100901
  2. ALLOPURINOL [Concomitant]
  3. NORVASC [Concomitant]
  4. DIOVAN [Concomitant]
  5. TOPROL-XL [Concomitant]
  6. TRILIPIX [Concomitant]
  7. SIMVASTATIN [Concomitant]

REACTIONS (1)
  - DIZZINESS [None]
